FAERS Safety Report 7473923-7 (Version None)
Quarter: 2011Q2

REPORT INFORMATION
  Report Type: 
  Country: None (occurrence: None)
  Receive Date: 20110511
  Receipt Date: 20110504
  Transmission Date: 20111010
  Serious: Yes (Hospitalization)
  Sender: FDA-Public Use
  Company Number: US-GILEAD-2011-0039165

PATIENT
  Age: 79 Year
  Sex: Female

DRUGS (3)
  1. REMODULIN [Concomitant]
  2. ADCIRCA [Concomitant]
  3. LETAIRIS [Suspect]
     Indication: PRODUCT USED FOR UNKNOWN INDICATION
     Route: 048
     Dates: start: 20090701

REACTIONS (1)
  - RESPIRATORY DISTRESS [None]
